FAERS Safety Report 15440984 (Version 4)
Quarter: 2019Q1

REPORT INFORMATION
  Report Type: Spontaneous
  Country: US (occurrence: US)
  Receive Date: 20180928
  Receipt Date: 20190205
  Transmission Date: 20190417
  Serious: Yes (Death, Hospitalization)
  Sender: FDA-Public Use
  Company Number: US-JNJFOC-20180934366

PATIENT
  Age: 66 Year
  Sex: Female
  Weight: 93.6 kg

DRUGS (11)
  1. ALDACTONE [Concomitant]
     Active Substance: SPIRONOLACTONE
     Route: 048
  2. SIMPONI ARIA [Suspect]
     Active Substance: GOLIMUMAB
     Indication: PRODUCT USED FOR UNKNOWN INDICATION
     Dosage: 2MG/KG
     Route: 042
     Dates: start: 20160903
  3. ERGOCALCIFEROL. [Concomitant]
     Active Substance: ERGOCALCIFEROL
     Indication: VITAMIN D DEFICIENCY
     Dosage: 50000 UNITS
     Route: 048
  4. PREDNISONE. [Concomitant]
     Active Substance: PREDNISONE
     Indication: RHEUMATOID ARTHRITIS
     Route: 065
  5. FISH OIL [Concomitant]
     Active Substance: FISH OIL
     Route: 048
  6. VITAMIN C [Concomitant]
     Active Substance: ASCORBIC ACID
     Route: 048
  7. NEURONTIN [Concomitant]
     Active Substance: GABAPENTIN
     Dosage: AT BED TIME
     Route: 048
  8. NORCO [Concomitant]
     Active Substance: ACETAMINOPHEN\HYDROCODONE BITARTRATE
     Dosage: AS NEEDED
     Route: 048
  9. IMBRUVICA [Concomitant]
     Active Substance: IBRUTINIB
     Route: 048
  10. APIXABAN [Concomitant]
     Active Substance: APIXABAN
     Route: 048
  11. ARAVA [Concomitant]
     Active Substance: LEFLUNOMIDE
     Indication: RHEUMATOID ARTHRITIS
     Route: 048

REACTIONS (19)
  - Respiratory distress [Unknown]
  - Intervertebral disc degeneration [Unknown]
  - Thyroid mass [Unknown]
  - Lymphoma [Unknown]
  - CNS ventriculitis [Unknown]
  - Decubitus ulcer [Unknown]
  - Renal cyst [Unknown]
  - Death [Fatal]
  - Meningitis [Unknown]
  - Encephalopathy [Unknown]
  - Bradycardia [Unknown]
  - Thrombocytopenia [Unknown]
  - Osteoporosis [Unknown]
  - Troponin increased [Unknown]
  - Hospitalisation [Unknown]
  - Atrial fibrillation [Unknown]
  - Type 2 diabetes mellitus [Unknown]
  - Dyslipidaemia [Unknown]
  - Vertigo positional [Unknown]

NARRATIVE: CASE EVENT DATE: 20170111
